FAERS Safety Report 5759494-1 (Version None)
Quarter: 2008Q2

REPORT INFORMATION
  Report Type: 
  Country: None (occurrence: None)
  Receive Date: 20080604
  Receipt Date: 20080604
  Transmission Date: 20081010
  Serious: Yes (Other)
  Sender: FDA-Public Use
  Company Number: None

PATIENT
  Age: 82 Year
  Sex: Female
  Weight: 81.6475 kg

DRUGS (3)
  1. DIGITEK 0.25 MG UNTIL MID APRIL, 2008 [Suspect]
     Indication: EXTRASYSTOLES
     Dosage: 0.25 MG
     Dates: start: 20080201, end: 20080501
  2. DIGITEK 0.125 MG MAY UNTIL MAY 12, 2008 [Suspect]
     Indication: EXTRASYSTOLES
     Dosage: 0.125 MG 1 DAILY
     Dates: start: 20080505, end: 20080512
  3. DIGOXIN [Concomitant]

REACTIONS (7)
  - ASTHENIA [None]
  - CRYING [None]
  - FATIGUE [None]
  - FEELING ABNORMAL [None]
  - HEART RATE DECREASED [None]
  - HEART RATE IRREGULAR [None]
  - SOCIAL AVOIDANT BEHAVIOUR [None]
